FAERS Safety Report 20038303 (Version 1)
Quarter: 2021Q4

REPORT INFORMATION
  Report Type: Spontaneous
  Country: US (occurrence: None)
  Receive Date: 20211105
  Receipt Date: 20211105
  Transmission Date: 20220304
  Serious: No
  Sender: FDA-Public Use
  Company Number: US-Merz Pharmaceuticals GmbH-21-03697

PATIENT
  Age: 32 Year
  Sex: Female

DRUGS (3)
  1. XEOMIN [Suspect]
     Active Substance: INCOBOTULINUMTOXINA
     Indication: Skin wrinkling
     Dates: start: 20211007, end: 20211007
  2. XEOMIN [Suspect]
     Active Substance: INCOBOTULINUMTOXINA
     Indication: Skin cosmetic procedure
  3. XEOMIN [Suspect]
     Active Substance: INCOBOTULINUMTOXINA
     Indication: Skin cosmetic procedure

REACTIONS (6)
  - Dysphonia [Unknown]
  - Injection site paraesthesia [Not Recovered/Not Resolved]
  - Hypersensitivity [Unknown]
  - Injection site erythema [Not Recovered/Not Resolved]
  - Injection site swelling [Unknown]
  - Off label use [Unknown]

NARRATIVE: CASE EVENT DATE: 20211001
